FAERS Safety Report 6824067-6 (Version None)
Quarter: 2010Q3

REPORT INFORMATION
  Report Type: 
  Country: None (occurrence: None)
  Receive Date: 20100708
  Receipt Date: 20060929
  Transmission Date: 20110219
  Serious: No
  Sender: FDA-Public Use
  Company Number: US-PFIZER INC-2006118565

PATIENT
  Sex: Female
  Weight: 56.25 kg

DRUGS (2)
  1. CHANTIX [Suspect]
     Indication: EX-TOBACCO USER
     Dates: start: 20060915, end: 20060928
  2. LIPITOR [Concomitant]

REACTIONS (2)
  - DRUG INEFFECTIVE [None]
  - NAUSEA [None]
